FAERS Safety Report 6573661-9 (Version None)
Quarter: 2010Q1

REPORT INFORMATION
  Report Type: 
  Country: None (occurrence: None)
  Receive Date: 20100208
  Receipt Date: 20100129
  Transmission Date: 20100710
  Serious: Yes (Disabling)
  Sender: FDA-Public Use
  Company Number: PT-B.I. PHARMACEUTICALS,INC./RIDGEFIELD-2009-DE-07665PO

PATIENT
  Sex: Female
  Weight: 65 kg

DRUGS (5)
  1. MICARDIS HCT [Suspect]
     Indication: HYPERTENSION
     Dosage: 80MG/
     Dates: start: 20030101
  2. MICARDIS HCT [Suspect]
     Dosage: 40+12.5MG
  3. HYPERIUM 1MG/RILMENIDINE [Concomitant]
     Indication: HYPERTENSION
  4. CALCIUM D SANDOZ/CALCIUM + CHOLECALCIFEROL [Concomitant]
     Indication: OSTEOPOROSIS
  5. PRAVASTINE SANDOZ [Concomitant]
     Indication: DYSLIPIDAEMIA

REACTIONS (1)
  - LIVEDO RETICULARIS [None]
